FAERS Safety Report 9466448 (Version 1)
Quarter: 2013Q3

REPORT INFORMATION
  Report Type: Report from Study
  Country: DE (occurrence: DE)
  Receive Date: 20130820
  Receipt Date: 20130820
  Transmission Date: 20140515
  Serious: Yes (Other)
  Sender: FDA-Public Use
  Company Number: DE-ACTELION-A-CH2013-86811

PATIENT
  Age: 54 Year
  Sex: Female
  Weight: 59 kg

DRUGS (8)
  1. TRACLEER [Suspect]
     Indication: SKIN ULCER
     Dosage: 125 MG, BID
     Route: 048
     Dates: start: 20111124, end: 20120718
  2. TRACLEER [Suspect]
     Dosage: 62.5 MG, BID
     Route: 048
     Dates: start: 20111028, end: 20111123
  3. TRACLEER [Suspect]
     Dosage: 62.5 MG, BID
     Route: 048
     Dates: start: 20130718
  4. SILDENAFIL [Concomitant]
     Indication: PULMONARY ARTERIAL HYPERTENSION
     Dosage: 20 MG, BID
     Dates: start: 2011
  5. CIPRALEX [Concomitant]
     Indication: DEPRESSION
     Dosage: UNK
     Dates: start: 2009
  6. ACC [Concomitant]
     Indication: ASTHMA
     Dosage: UNK
     Dates: start: 201201
  7. MUSARIL [Concomitant]
     Indication: NECK PAIN
     Dosage: UNK
     Dates: start: 20120620, end: 20120718
  8. ESOMEPRAZOL [Concomitant]
     Indication: GASTROOESOPHAGEAL REFLUX DISEASE
     Dosage: UNK
     Dates: start: 20110114

REACTIONS (4)
  - Neuroborreliosis [Recovered/Resolved]
  - Pain [Recovered/Resolved]
  - Nausea [Recovered/Resolved]
  - Vertigo [Recovered/Resolved]
